FAERS Safety Report 7965096-9 (Version None)
Quarter: 2011Q4

REPORT INFORMATION
  Report Type: 
  Country: None (occurrence: None)
  Receive Date: 20111208
  Receipt Date: 20111126
  Transmission Date: 20120403
  Serious: Yes (Hospitalization, Other)
  Sender: FDA-Public Use
  Company Number: US-BAYER-2011-028514

PATIENT
  Age: 26 Year
  Sex: Female
  Weight: 81.633 kg

DRUGS (17)
  1. NAPROXEN [Concomitant]
     Dosage: UNK
     Dates: start: 20080401
  2. CIPROFLOXACIN [Concomitant]
     Indication: URINARY TRACT INFECTION
     Dosage: 500 MG, BID
     Route: 048
  3. MAXALT [Concomitant]
     Indication: MIGRAINE
     Dosage: UNK
     Dates: start: 20010101
  4. MULTI-VITAMIN [Concomitant]
     Indication: MEDICAL DIET
  5. ELAVIL [Concomitant]
  6. YASMIN [Suspect]
     Indication: ORAL CONTRACEPTION
     Dosage: UNK
     Dates: start: 20071101, end: 20090201
  7. LEVOFLOXACIN [Concomitant]
     Indication: URINARY TRACT INFECTION
     Dosage: 500 MG, UNK
     Route: 048
  8. AZITHROMYCIN [Concomitant]
     Indication: UNEVALUABLE EVENT
  9. GABAPENTIN [Concomitant]
     Indication: CONVULSION
     Dosage: UNK
     Dates: start: 20050101
  10. TOPAMAX [Concomitant]
     Indication: MIGRAINE
     Dosage: UNK
     Dates: start: 20050101, end: 20101201
  11. LORATADINE [Concomitant]
     Indication: HYPERSENSITIVITY
  12. SUMATRIPTAN [Concomitant]
     Indication: MIGRAINE
     Dosage: UNK
     Dates: start: 20010101
  13. MOTRIN [Concomitant]
     Dosage: UNK
     Dates: start: 20080401
  14. FLEXERIL [Concomitant]
     Indication: FIBROMYALGIA
     Dosage: UNK
     Dates: start: 20080401
  15. BACTRIM DS [Concomitant]
     Indication: URINARY TRACT INFECTION
     Dosage: UNK UNK, BID
     Route: 048
  16. IMITREX [Concomitant]
     Indication: MIGRAINE
     Dosage: UNK
     Dates: start: 20010101
  17. PORTIA-28 [Concomitant]
     Dosage: UNK
     Dates: start: 20090205, end: 20100115

REACTIONS (10)
  - GENERAL PHYSICAL HEALTH DETERIORATION [None]
  - ANXIETY [None]
  - ARRHYTHMIA [None]
  - CHEST DISCOMFORT [None]
  - PAIN [None]
  - TACHYCARDIA [None]
  - PALPITATIONS [None]
  - CHEST PAIN [None]
  - EMOTIONAL DISTRESS [None]
  - MENTAL DISORDER [None]
